FAERS Safety Report 20905386 (Version 1)
Quarter: 2022Q2

REPORT INFORMATION
  Report Type: Spontaneous
  Country: US (occurrence: None)
  Receive Date: 20220601
  Receipt Date: 20220601
  Transmission Date: 20220721
  Serious: Yes (Hospitalization)
  Sender: FDA-Public Use
  Company Number: None

PATIENT
  Sex: Female

DRUGS (7)
  1. PLEGRIDY [Suspect]
     Active Substance: PEGINTERFERON BETA-1A
     Indication: Multiple sclerosis
     Route: 058
     Dates: start: 20220428
  2. EFFEXOR TAB [Concomitant]
  3. METFORMIN POW HCL [Concomitant]
  4. PLEGRIDY STARTER PACK [Concomitant]
  5. REBIF [Concomitant]
     Active Substance: INTERFERON BETA-1A
  6. REBIF [Concomitant]
     Active Substance: INTERFERON BETA-1A
  7. REBIF TITRTN INJ PACK [Concomitant]

REACTIONS (1)
  - Cerebrovascular accident [None]
